FAERS Safety Report 6155589-1 (Version None)
Quarter: 2009Q2

REPORT INFORMATION
  Report Type: 
  Country: None (occurrence: None)
  Receive Date: 20090413
  Receipt Date: 20090330
  Transmission Date: 20091009
  Serious: Yes (Life-Threatening, Hospitalization, Other)
  Sender: FDA-Public Use
  Company Number: 1713747-2009-000006

PATIENT
  Age: 70 Year
  Sex: Female

DRUGS (2)
  1. STAY SAFE 1.5% DEX.LM/LC, 1.5/2L, 6PK [Suspect]
     Indication: RENAL FAILURE CHRONIC
     Dosage: INTRAPERITONEALLY
     Route: 033
     Dates: start: 20090228, end: 20090310
  2. STAY SAFE 2.5% DEX.LM/LC, 1.5/2L, 6PK [Suspect]
     Indication: RENAL FAILURE CHRONIC
     Dosage: INTRAPERITONEALLY
     Route: 033
     Dates: start: 20090228, end: 20090310

REACTIONS (4)
  - HAEMODIALYSIS [None]
  - PERITONEAL FLUID ANALYSIS ABNORMAL [None]
  - PERITONITIS [None]
  - SALMONELLOSIS [None]
